FAERS Safety Report 5873705-3 (Version None)
Quarter: 2008Q3

REPORT INFORMATION
  Report Type: 
  Country: None (occurrence: None)
  Receive Date: 20080908
  Receipt Date: 20080904
  Transmission Date: 20090109
  Serious: Yes (Hospitalization)
  Sender: FDA-Public Use
  Company Number: D0058228A

PATIENT
  Age: 71 Year
  Sex: Female

DRUGS (2)
  1. LAMICTAL [Suspect]
     Indication: EPILEPSY
     Dosage: 25MG THREE TIMES PER DAY
     Route: 048
     Dates: start: 20080701
  2. KEPPRA [Concomitant]
     Indication: EPILEPSY
     Dosage: 500MG SIX TIMES PER DAY
     Route: 048

REACTIONS (6)
  - CONVULSION [None]
  - ERYTHEMA [None]
  - HYPERSENSITIVITY [None]
  - HYPERTHERMIA [None]
  - PRURITUS GENERALISED [None]
  - RASH [None]
